FAERS Safety Report 6901978-4 (Version None)
Quarter: 2010Q3

REPORT INFORMATION
  Report Type: 
  Country: None (occurrence: None)
  Receive Date: 20100803
  Receipt Date: 20080408
  Transmission Date: 20110219
  Serious: No
  Sender: FDA-Public Use
  Company Number: US-PFIZER INC-2008019547

PATIENT

DRUGS (3)
  1. LYRICA [Suspect]
     Indication: FIBROMYALGIA
  2. IBUPROFEN [Concomitant]
  3. AMITRIPTYLINE HYDROCHLORIDE [Concomitant]

REACTIONS (1)
  - DRUG EFFECT DECREASED [None]
